FAERS Safety Report 4900368-3 (Version None)
Quarter: 2006Q1

REPORT INFORMATION
  Report Type: 
  Country: None (occurrence: None)
  Receive Date: 20060203
  Receipt Date: 20060127
  Transmission Date: 20060701
  Serious: Yes (Other)
  Sender: FDA-Public Use
  Company Number: PHEH2006US01448

PATIENT
  Age: 30 Year
  Sex: Male

DRUGS (4)
  1. TRILEPTAL [Suspect]
     Indication: CONVULSION
     Dosage: 600 MG, BID
     Route: 048
     Dates: start: 20041006, end: 20050121
  2. KEPPRA [Suspect]
     Indication: CONVULSION
     Dosage: 2000 MG, BID
     Route: 048
     Dates: start: 20041209, end: 20050121
  3. ZANTAC [Concomitant]
     Dosage: 150 UNK, QD
     Route: 048
     Dates: start: 20040518
  4. PROZAC [Concomitant]
     Dosage: 20 MG, QD
     Dates: start: 20040518

REACTIONS (2)
  - LIPASE INCREASED [None]
  - PANCREATITIS [None]
